FAERS Safety Report 11289601 (Version 2)
Quarter: 2015Q3

REPORT INFORMATION
  Report Type: Spontaneous
  Country: US (occurrence: US)
  Receive Date: 20150721
  Receipt Date: 20150820
  Transmission Date: 20151125
  Serious: Yes (Other)
  Sender: FDA-Public Use
  Company Number: US-UCBSA-2015022156

PATIENT
  Age: 3 Year
  Sex: Female
  Weight: 15 kg

DRUGS (18)
  1. KEPPRA [Suspect]
     Active Substance: LEVETIRACETAM
     Indication: SEIZURE
     Dosage: STRENGTH 100 MG/ML, 6 ML, 2X/DAY (BID)
     Route: 048
     Dates: start: 201409
  2. ACETAMINOPHEN. [Concomitant]
     Active Substance: ACETAMINOPHEN
     Indication: PRODUCT USED FOR UNKNOWN INDICATION
     Route: 048
  3. CHILDRENS VITAMINS [Concomitant]
     Indication: PRODUCT USED FOR UNKNOWN INDICATION
     Dosage: UNK
     Route: 048
  4. KLONOPIN [Concomitant]
     Active Substance: CLONAZEPAM
     Indication: PYREXIA
  5. SPECTAZOLE [Concomitant]
     Active Substance: ECONAZOLE NITRATE
     Indication: PRODUCT USED FOR UNKNOWN INDICATION
     Dosage: 1 %, 1 TUBE TOPICALLY TWICE DAILY
  6. CHILDRENS MOTRIN [Concomitant]
     Active Substance: IBUPROFEN
     Indication: PRODUCT USED FOR UNKNOWN INDICATION
     Dosage: UNK
     Route: 048
  7. KEPPRA [Suspect]
     Active Substance: LEVETIRACETAM
     Dosage: 3 ML, 2X/DAY (BID)
     Route: 048
     Dates: start: 201501
  8. KLONOPIN [Concomitant]
     Active Substance: CLONAZEPAM
     Indication: EPILEPSY
  9. ZANTAC [Concomitant]
     Active Substance: RANITIDINE HYDROCHLORIDE
     Indication: PRODUCT USED FOR UNKNOWN INDICATION
     Dosage: 15 MG/ML
     Route: 048
  10. FLORAJEN [Concomitant]
     Indication: PRODUCT USED FOR UNKNOWN INDICATION
     Dosage: TAKE ONE CAP BY MOUTH , ONCE A DAY
     Route: 048
  11. CLARITIN [Concomitant]
     Active Substance: LORATADINE
     Indication: PRODUCT USED FOR UNKNOWN INDICATION
     Dosage: 5 MG/5 ML
     Route: 048
  12. LAMICTAL [Concomitant]
     Active Substance: LAMOTRIGINE
     Indication: SEIZURE
     Dosage: 25 MG, 2 TABS (50 MG TOTAL), TWICE DAILY
     Route: 048
     Dates: start: 201412
  13. BENADRYL [Concomitant]
     Active Substance: DIPHENHYDRAMINE HYDROCHLORIDE
     Indication: PRODUCT USED FOR UNKNOWN INDICATION
     Dosage: 12.5 MG, EVERY 6 HOURS AS NEEDED 1.25 ML
     Route: 048
  14. MYCOSTATIN [Concomitant]
     Active Substance: NYSTATIN
     Indication: PRODUCT USED FOR UNKNOWN INDICATION
     Dosage: 100,000 UNIT/GRAM OINTMENT
     Route: 061
  15. KLONOPIN [Concomitant]
     Active Substance: CLONAZEPAM
     Indication: SEIZURE
     Dosage: 1 D (0.25 MG TOTAL) F, 2X/DAY (BID), FOR 3 DAYS
     Route: 048
  16. VIMPAT [Suspect]
     Active Substance: LACOSAMIDE
     Indication: SEIZURE
     Dosage: 2 ML, 2X/DAY (BID)
     Route: 048
     Dates: start: 20150626, end: 2015
  17. VIMPAT [Suspect]
     Active Substance: LACOSAMIDE
     Dosage: 7.5 MG, 2X/DAY (BID)
     Route: 048
     Dates: start: 2015
  18. TRILEPTAL [Concomitant]
     Active Substance: OXCARBAZEPINE
     Indication: SEIZURE
     Dosage: STRENGTH : 160 MG, 225 MG (1.5 PILLS) IN AM AND 300 MG (2 PILLS IN PM)
     Route: 048
     Dates: start: 201505

REACTIONS (3)
  - Seizure [Recovered/Resolved]
  - Off label use [Unknown]
  - Abnormal behaviour [Recovered/Resolved]

NARRATIVE: CASE EVENT DATE: 201409
